FAERS Safety Report 8481593-4 (Version None)
Quarter: 2012Q2

REPORT INFORMATION
  Report Type: 
  Country: None (occurrence: None)
  Receive Date: 20120615
  Receipt Date: 20120604
  Transmission Date: 20120825
  Serious: Yes (Other)
  Sender: FDA-Public Use
  Company Number: DSA_57798_2012

PATIENT
  Sex: Female

DRUGS (3)
  1. FLUOROURACIL [Suspect]
     Indication: INFLAMMATORY CARCINOMA OF BREAST STAGE III
     Dosage: (500 MG/M2 (EVERY THREE WEEKS) INTRAVENOUS BOLUS)
     Route: 040
  2. EPIRUBICIN [Suspect]
     Indication: INFLAMMATORY CARCINOMA OF BREAST STAGE III
     Dosage: (100 MG/M2 (EVERY THREE WEEKS) INTRAVENOUS (NOT OTHERWISE SPECIFIED))
     Route: 042
  3. CYCLOPHOSPHAMIDE [Suspect]
     Indication: INFLAMMATORY CARCINOMA OF BREAST STAGE III
     Dosage: (500 MG/M2 (EVERY THREE WEEKS) INTRAVENOUS (NOT OTHERWISE SPECIFIED))
     Route: 042

REACTIONS (1)
  - MENSTRUATION IRREGULAR [None]
